FAERS Safety Report 19878404 (Version 1)
Quarter: 2021Q3

REPORT INFORMATION
  Report Type: Spontaneous
  Country: JP (occurrence: JP)
  Receive Date: 20210924
  Receipt Date: 20210924
  Transmission Date: 20211014
  Serious: Yes (Other)
  Sender: FDA-Public Use
  Company Number: JP-GLAXOSMITHKLINE-JP2021199441

PATIENT
  Age: 78 Year
  Sex: Male

DRUGS (4)
  1. DOGMATYL [Concomitant]
     Active Substance: SULPIRIDE
     Dosage: UNK
  2. RELVAR ELLIPTA [Suspect]
     Active Substance: FLUTICASONE FUROATE\VILANTEROL TRIFENATATE
     Indication: EMPHYSEMA
     Dosage: 100 UG, QD
  3. DEPAS (ETIZOLAM) [Concomitant]
     Active Substance: ETIZOLAM
     Dosage: UNK
  4. MYSLEE [Concomitant]
     Active Substance: ZOLPIDEM TARTRATE
     Indication: SLEEP DISORDER
     Dosage: UNK

REACTIONS (1)
  - Gastrointestinal fungal infection [Unknown]
